FAERS Safety Report 5509921-X (Version None)
Quarter: 2007Q4

REPORT INFORMATION
  Report Type: 
  Country: None (occurrence: None)
  Receive Date: 20071108
  Receipt Date: 20071031
  Transmission Date: 20080405
  Serious: Yes (Hospitalization)
  Sender: FDA-Public Use
  Company Number: GB-PURDUE-GBR_2007_0003407

PATIENT
  Sex: Male
  Weight: 3 kg

DRUGS (1)
  1. DIHYDROCODEINE BITARTRATE INJ [Suspect]
     Indication: DRUG USE FOR UNKNOWN INDICATION
     Route: 064

REACTIONS (1)
  - DRUG WITHDRAWAL SYNDROME NEONATAL [None]
